FAERS Safety Report 8649627 (Version 2)
Quarter: 2013Q2

REPORT INFORMATION
  Report Type: Spontaneous
  Country: GB (occurrence: GB)
  Receive Date: 20120705
  Receipt Date: 20130627
  Transmission Date: 20140414
  Serious: Yes (Other)
  Sender: FDA-Public Use
  Company Number: GB-PFIZER INC-2012156613

PATIENT
  Age: 57 Year
  Sex: Female

DRUGS (2)
  1. AMLODIPINE BESILATE [Suspect]
     Indication: HYPERTENSION
     Dosage: 5 MG, 1X/DAY
     Dates: start: 20120608, end: 20120609
  2. AMLODIPINE [Concomitant]
     Indication: HYPERTENSION
     Dates: start: 20120509, end: 20120608

REACTIONS (6)
  - Blood pressure increased [Unknown]
  - Palpitations [Unknown]
  - Headache [Unknown]
  - Lacrimation increased [Unknown]
  - Malaise [Unknown]
  - Crying [Unknown]
